FAERS Safety Report 11279225 (Version 2)
Quarter: 2015Q3

REPORT INFORMATION
  Report Type: Spontaneous
  Country: US (occurrence: US)
  Receive Date: 20150717
  Receipt Date: 20150821
  Transmission Date: 20151125
  Serious: Yes (Hospitalization, Other)
  Sender: FDA-Public Use
  Company Number: US-PFIZER INC-2015235912

PATIENT
  Age: 63 Year
  Sex: Male

DRUGS (15)
  1. TESTOSTERONE CIPIONATE [Suspect]
     Active Substance: TESTOSTERONE
     Indication: LIBIDO DISORDER
     Dosage: UNK, 1X/DAY
     Dates: start: 201303, end: 201406
  2. DEPO-TESTOSTERONE [Suspect]
     Active Substance: TESTOSTERONE CYPIONATE
     Indication: LIBIDO DISORDER
     Dosage: UNK, 1X/DAY
     Dates: start: 201309
  3. ANDROGEL [Suspect]
     Active Substance: TESTOSTERONE
     Indication: LIBIDO DISORDER
     Dosage: UNK, 1X/DAY
     Dates: start: 200811
  4. GLUCOTROL [Concomitant]
     Active Substance: GLIPIZIDE
     Indication: DIABETES MELLITUS
     Dosage: UNK
     Dates: start: 2010
  5. ATORVASTATIN [Concomitant]
     Active Substance: ATORVASTATIN
     Indication: BLOOD CHOLESTEROL ABNORMAL
     Dosage: UNK
     Dates: start: 2012
  6. AMPHETAMINE SALT COMBO [Concomitant]
     Indication: ATTENTION DEFICIT/HYPERACTIVITY DISORDER
     Dosage: UNK
     Dates: start: 2007
  7. OXYCONTIN [Concomitant]
     Active Substance: OXYCODONE HYDROCHLORIDE
     Indication: NECK PAIN
     Dosage: UNK
     Dates: start: 2009
  8. LEXAPRO [Concomitant]
     Active Substance: ESCITALOPRAM OXALATE
     Indication: DEPRESSION
     Dosage: UNK
     Dates: start: 2012
  9. DEPO-TESTOSTERONE [Suspect]
     Active Substance: TESTOSTERONE CYPIONATE
     Dosage: UNK, 1X/DAY
     Dates: start: 201408
  10. ANDROGEL [Suspect]
     Active Substance: TESTOSTERONE
     Dosage: UNK, 1X/DAY
     Dates: start: 201202
  11. TESTIM [Suspect]
     Active Substance: TESTOSTERONE
     Indication: LIBIDO DISORDER
     Dosage: UNK, 1X/DAY
     Dates: start: 201212, end: 20130215
  12. SYNTHROID [Concomitant]
     Active Substance: LEVOTHYROXINE SODIUM
     Indication: THYROID DISORDER
     Dosage: UNK
     Dates: start: 2009
  13. DEPO-TESTOSTERONE [Suspect]
     Active Substance: TESTOSTERONE CYPIONATE
     Indication: HORMONE REPLACEMENT THERAPY
     Dosage: UNK
     Dates: start: 20130829, end: 20141023
  14. ANDRODERM [Suspect]
     Active Substance: TESTOSTERONE
     Indication: LIBIDO DECREASED
     Dosage: UNK, 1X/DAY
     Dates: start: 200811, end: 20121206
  15. ANDROGEL [Suspect]
     Active Substance: TESTOSTERONE
     Dosage: UNK, 1X/DAY
     Dates: start: 201209

REACTIONS (1)
  - Acute myocardial infarction [Unknown]

NARRATIVE: CASE EVENT DATE: 20141016
